FAERS Safety Report 18401910 (Version 1)
Quarter: 2020Q4

REPORT INFORMATION
  Report Type: Spontaneous
  Country: GR (occurrence: GR)
  Receive Date: 20201019
  Receipt Date: 20201019
  Transmission Date: 20210114
  Serious: Yes (Hospitalization)
  Sender: FDA-Public Use
  Company Number: NVSC2020GR279291

PATIENT
  Age: 23 Month
  Sex: Male

DRUGS (1)
  1. AMOXICILLIN,CLAVULANIC ACID [Suspect]
     Active Substance: AMOXICILLIN\CLAVULANIC ACID
     Indication: UPPER RESPIRATORY TRACT INFECTION
     Dosage: UNK (A WEEK PRIOR HOSPITALISATION)
     Route: 065

REACTIONS (6)
  - Erythema multiforme [Recovered/Resolved]
  - Mouth ulceration [Unknown]
  - Lip swelling [Unknown]
  - Anxiety [Unknown]
  - Stomatitis [Unknown]
  - Pruritus [Unknown]
